FAERS Safety Report 6934079-X (Version None)
Quarter: 2010Q3

REPORT INFORMATION
  Report Type: 
  Country: None (occurrence: None)
  Receive Date: 20100820
  Receipt Date: 20100810
  Transmission Date: 20110219
  Serious: Yes (Other)
  Sender: FDA-Public Use
  Company Number: CH-JNJFOC-20100803458

PATIENT
  Sex: Male

DRUGS (4)
  1. REMICADE [Suspect]
     Indication: COLITIS ULCERATIVE
     Dosage: THERAPY DURATION 3 MONTHS
     Route: 042
  2. REMICADE [Suspect]
     Dosage: THERAPY DURATION 10 MONTHS
     Route: 042
  3. REMICADE [Suspect]
     Route: 042
  4. PLAVIX [Suspect]
     Indication: PRODUCT USED FOR UNKNOWN INDICATION

REACTIONS (2)
  - ANGIOEDEMA [None]
  - EYELID OEDEMA [None]
